FAERS Safety Report 7335519-7 (Version None)
Quarter: 2011Q1

REPORT INFORMATION
  Report Type: 
  Country: None (occurrence: None)
  Receive Date: 20110307
  Receipt Date: 20110222
  Transmission Date: 20110831
  Serious: Yes (Hospitalization, Other)
  Sender: FDA-Public Use
  Company Number: JP-AMGEN-JPNCT2011001533

PATIENT
  Age: 73 Year
  Sex: Male
  Weight: 59 kg

DRUGS (13)
  1. PANITUMUMAB [Suspect]
     Dosage: 6 MG/KG, Q2WK
     Route: 041
     Dates: start: 20101208
  2. DEXALTIN [Concomitant]
     Dosage: UNK
     Route: 049
  3. LOCOID [Concomitant]
     Dosage: UNK
     Route: 062
  4. DEXAMETHASONE ACETATE [Concomitant]
     Dosage: UNK
     Route: 042
  5. MAGNESIUM SULFATE [Concomitant]
     Dosage: UNK
     Route: 042
  6. FLUOROURACIL [Suspect]
     Indication: COLORECTAL CANCER
     Dosage: UNK UNK, Q2WK
     Route: 042
     Dates: start: 20100818, end: 20110119
  7. KERATINAMIN KOWA [Concomitant]
     Dosage: UNK
     Route: 062
  8. PANITUMUMAB [Suspect]
     Indication: COLORECTAL CANCER
     Dosage: 6 MG/KG, Q2WK
     Route: 041
     Dates: start: 20100818, end: 20110119
  9. CALCICOL [Concomitant]
     Dosage: UNK
     Route: 042
  10. MYSER [Concomitant]
     Dosage: UNK
     Route: 062
  11. OXALIPLATIN [Suspect]
     Indication: COLORECTAL CANCER
     Dosage: 85 MG/M2, Q2WK
     Route: 041
     Dates: start: 20100818, end: 20110119
  12. ALOXI [Concomitant]
     Dosage: UNK
     Route: 042
  13. CALCIUM LEVOFOLINATE [Suspect]
     Indication: COLORECTAL CANCER
     Route: 041
     Dates: start: 20100818

REACTIONS (4)
  - DEVICE RELATED INFECTION [None]
  - DERMATITIS ACNEIFORM [None]
  - FEBRILE NEUTROPENIA [None]
  - STOMATITIS [None]
